FAERS Safety Report 4822314-3 (Version None)
Quarter: 2005Q4

REPORT INFORMATION
  Report Type: 
  Country: None (occurrence: None)
  Receive Date: 20051103
  Receipt Date: 20051013
  Transmission Date: 20060501
  Serious: Yes (Hospitalization, Other)
  Sender: FDA-Public Use
  Company Number: US_0510122984

PATIENT
  Age: 51 Year
  Sex: Male
  Weight: 85 kg

DRUGS (19)
  1. ALIMTA [Suspect]
     Indication: NON-SMALL CELL LUNG CANCER METASTATIC
  2. GEMZAR [Suspect]
     Indication: NON-SMALL CELL LUNG CANCER METASTATIC
     Dates: start: 20040601
  3. SENNA [Concomitant]
  4. PERCOCET [Concomitant]
  5. LASIX [Concomitant]
  6. FLEXERIL [Concomitant]
  7. NEURONTIN [Concomitant]
  8. AMBIEN [Concomitant]
  9. PREVACID [Concomitant]
  10. ASPIRIN [Concomitant]
  11. VITAMIN D [Concomitant]
  12. VITAMIN B6 [Concomitant]
  13. FEOSOL (FERROUS SULFATE) [Concomitant]
  14. CALCIUM GLUCONATE [Concomitant]
  15. COLACE (DOCUSATE SODIUM) [Concomitant]
  16. ZOMETA [Concomitant]
  17. OXYCONTIN [Concomitant]
  18. METOPROLOL [Concomitant]
  19. CELEBREX [Concomitant]

REACTIONS (34)
  - ABDOMINAL PAIN [None]
  - ANAEMIA [None]
  - ARTHRALGIA [None]
  - ATELECTASIS [None]
  - BLOOD BILIRUBIN INCREASED [None]
  - BLOOD CREATININE INCREASED [None]
  - BLOOD SODIUM DECREASED [None]
  - BLOOD UREA INCREASED [None]
  - BONE MARROW FAILURE [None]
  - CHILLS [None]
  - CHRONIC SINUSITIS [None]
  - DEHYDRATION [None]
  - DIARRHOEA [None]
  - DYSPNOEA [None]
  - ENTEROCOLITIS [None]
  - FEBRILE NEUTROPENIA [None]
  - KLEBSIELLA BACTERAEMIA [None]
  - LIVER FUNCTION TEST ABNORMAL [None]
  - LYMPHADENOPATHY [None]
  - MALAISE [None]
  - MALIGNANT NEOPLASM PROGRESSION [None]
  - METASTASES TO BONE [None]
  - METASTASES TO LIVER [None]
  - MUCOSAL DRYNESS [None]
  - MUCOSAL INFLAMMATION [None]
  - MUSCULAR WEAKNESS [None]
  - NAUSEA [None]
  - PANCYTOPENIA [None]
  - PNEUMONITIS [None]
  - RHINORRHOEA [None]
  - SEPSIS [None]
  - SINUS TACHYCARDIA [None]
  - SKIN TURGOR DECREASED [None]
  - VOMITING [None]
